FAERS Safety Report 9539000 (Version 1)
Quarter: 2013Q3

REPORT INFORMATION
  Report Type: Report from Study
  Country: PL (occurrence: PL)
  Receive Date: 20130920
  Receipt Date: 20130920
  Transmission Date: 20140515
  Serious: Yes (Other)
  Sender: FDA-Public Use
  Company Number: PHHY2013PL101872

PATIENT
  Age: 60 Year
  Sex: Female

DRUGS (1)
  1. GLIVEC [Suspect]
     Indication: CHRONIC MYELOID LEUKAEMIA
     Dosage: 400 MG, DAILY
     Route: 048
     Dates: start: 20120626, end: 20130219

REACTIONS (8)
  - Visual acuity reduced [Unknown]
  - Periorbital oedema [Unknown]
  - Face oedema [Unknown]
  - Burning sensation [Unknown]
  - Skin lesion [Unknown]
  - Lacrimation increased [Unknown]
  - Rash [Unknown]
  - Pruritus [Unknown]
